FAERS Safety Report 20171163 (Version 1)
Quarter: 2021Q4

REPORT INFORMATION
  Report Type: Spontaneous
  Country: TW (occurrence: TW)
  Receive Date: 20211210
  Receipt Date: 20211210
  Transmission Date: 20220304
  Serious: Yes (Other)
  Sender: FDA-Public Use
  Company Number: TW-Merck Healthcare KGaA-9284040

PATIENT
  Age: 50 Year
  Sex: Male
  Weight: 65 kg

DRUGS (8)
  1. ERBITUX [Suspect]
     Active Substance: CETUXIMAB
     Indication: Laryngeal cancer
     Dosage: 20ML/VIAL, 670-700 MG
     Route: 041
     Dates: start: 20190619, end: 20190721
  2. ERBITUX [Suspect]
     Active Substance: CETUXIMAB
     Dosage: 670-700 MG
     Route: 041
     Dates: start: 20190731, end: 20191112
  3. FLUOROURACIL [Concomitant]
     Active Substance: FLUOROURACIL
     Indication: Laryngeal cancer
     Dosage: 20 MG/VIAL, 830-875 MG
     Dates: start: 20190619, end: 20190721
  4. FLUOROURACIL [Concomitant]
     Active Substance: FLUOROURACIL
     Dosage: 825-880 MG
     Dates: start: 20190731, end: 20191112
  5. CISPLATIN [Concomitant]
     Active Substance: CISPLATIN
     Indication: Laryngeal cancer
     Dosage: 50ML/VIAL, 83 - 87.5 MG
     Dates: start: 20190619, end: 20190721
  6. CISPLATIN [Concomitant]
     Active Substance: CISPLATIN
     Dosage: 44-88 MG
     Dates: start: 20190731, end: 20191112
  7. TECENTRIQ [Concomitant]
     Active Substance: ATEZOLIZUMAB
     Indication: Laryngeal cancer
     Dosage: 20ML/VIAL, 1200 MG
     Route: 041
     Dates: start: 20190619, end: 20190721
  8. TECENTRIQ [Concomitant]
     Active Substance: ATEZOLIZUMAB
     Dosage: 1200 MG, UNK
     Route: 041
     Dates: start: 20190731, end: 20191112

REACTIONS (12)
  - Thrombocytopenia [Unknown]
  - Alopecia [Unknown]
  - Anaemia [Unknown]
  - Hypokalaemia [Unknown]
  - Leukopenia [Unknown]
  - Neutropenia [Unknown]
  - Hypomagnesaemia [Unknown]
  - Diarrhoea [Unknown]
  - Vomiting [Unknown]
  - Nausea [Unknown]
  - Decreased appetite [Unknown]
  - Fatigue [Unknown]

NARRATIVE: CASE EVENT DATE: 20190101
